FAERS Safety Report 11552858 (Version 2)
Quarter: 2015Q4

REPORT INFORMATION
  Report Type: Spontaneous
  Country: NO (occurrence: NO)
  Receive Date: 20150925
  Receipt Date: 20151007
  Transmission Date: 20160304
  Serious: Yes (Hospitalization, Other)
  Sender: FDA-Public Use
  Company Number: NO-009507513-1509NOR008448

PATIENT
  Age: 24 Year
  Sex: Female
  Weight: 100 kg

DRUGS (3)
  1. VITAMINS (UNSPECIFIED) [Concomitant]
     Active Substance: VITAMINS
  2. NEXPLANON [Suspect]
     Active Substance: ETONOGESTREL
     Indication: CONTRACEPTION
     Dosage: 68 MG,FOR 3 YEARS
     Dates: start: 20150115, end: 20150620
  3. ZYRTEC [Concomitant]
     Active Substance: CETIRIZINE HYDROCHLORIDE
     Indication: SEASONAL ALLERGY
     Dosage: FILM COATED TABLET
     Dates: start: 20140101

REACTIONS (5)
  - Muscle spasms [Recovered/Resolved with Sequelae]
  - Oedema peripheral [Recovered/Resolved with Sequelae]
  - Gait disturbance [Recovering/Resolving]
  - Musculoskeletal stiffness [Recovering/Resolving]
  - Pain in extremity [Recovered/Resolved with Sequelae]

NARRATIVE: CASE EVENT DATE: 20150418
